FAERS Safety Report 10974300 (Version 1)
Quarter: 2015Q1

REPORT INFORMATION
  Report Type: Spontaneous
  Country: US (occurrence: None)
  Receive Date: 20150331
  Receipt Date: 20150331
  Transmission Date: 20150721
  Serious: No
  Sender: FDA-Public Use
  Company Number: None

PATIENT
  Age: 57 Year
  Sex: Male

DRUGS (2)
  1. ZYKADIA [Suspect]
     Active Substance: CERITINIB
     Indication: LUNG NEOPLASM MALIGNANT
     Route: 048
     Dates: start: 20150217
  2. ZYKADIA [Suspect]
     Active Substance: CERITINIB
     Route: 048
     Dates: start: 20150217

REACTIONS (1)
  - Cerebral disorder [None]

NARRATIVE: CASE EVENT DATE: 20150326
